FAERS Safety Report 6895639-8 (Version None)
Quarter: 2010Q3

REPORT INFORMATION
  Report Type: 
  Country: None (occurrence: None)
  Receive Date: 20100802
  Receipt Date: 20100722
  Transmission Date: 20110219
  Serious: Yes (Death, Hospitalization)
  Sender: FDA-Public Use
  Company Number: FR-BRISTOL-MYERS SQUIBB COMPANY-15218134

PATIENT
  Age: 84 Year
  Sex: Male

DRUGS (9)
  1. GLUCOPHAGE [Suspect]
     Indication: TYPE 2 DIABETES MELLITUS
     Route: 048
     Dates: end: 20100620
  2. VASTAREL [Concomitant]
  3. RAMIPRIL [Concomitant]
  4. DIAMICRON [Concomitant]
  5. SERC [Concomitant]
  6. OMIX [Concomitant]
  7. PERMIXON [Concomitant]
  8. BISOPROLOL FUMARATE [Concomitant]
  9. PREVISCAN [Concomitant]

REACTIONS (8)
  - ASTHENIA [None]
  - BACK PAIN [None]
  - DIARRHOEA [None]
  - HYPERKALAEMIA [None]
  - INTERNATIONAL NORMALISED RATIO INCREASED [None]
  - LACTIC ACIDOSIS [None]
  - RENAL FAILURE ACUTE [None]
  - VOMITING [None]
